FAERS Safety Report 8895087 (Version 1)
Quarter: 2012Q4

REPORT INFORMATION
  Report Type: 
  Country: US (occurrence: US)
  Receive Date: 20121107
  Receipt Date: 20121107
  Transmission Date: 20130627
  Serious: No
  Sender: FDA-Public Use
  Company Number: US-AMGEN-USASP2011049102

PATIENT
  Age: 50 Year
  Sex: Female
  Weight: 52.15 kg

DRUGS (2)
  1. ENBREL [Suspect]
     Indication: PRODUCT USED FOR UNKNOWN INDICATION
     Dosage: 50 mg, qwk
  2. ALEVE [Concomitant]
     Dosage: 220 mg, UNK

REACTIONS (3)
  - Vomiting [Unknown]
  - Gastroenteritis viral [Unknown]
  - Diarrhoea [Unknown]
